FAERS Safety Report 5810268-2 (Version None)
Quarter: 2008Q3

REPORT INFORMATION
  Report Type: 
  Country: None (occurrence: None)
  Receive Date: 20080715
  Receipt Date: 20080205
  Transmission Date: 20090109
  Serious: No
  Sender: FDA-Public Use
  Company Number: A0707506A

PATIENT
  Age: 31 Year
  Sex: Female

DRUGS (2)
  1. IMITREX [Suspect]
     Indication: MIGRAINE
     Dosage: 100MG SINGLE DOSE
     Route: 048
     Dates: start: 20080204
  2. NO CONCURRENT MEDICATION [Concomitant]

REACTIONS (3)
  - BURNING SENSATION [None]
  - CHEST PAIN [None]
  - DYSPNOEA [None]
